FAERS Safety Report 5171618-6 (Version None)
Quarter: 2006Q4

REPORT INFORMATION
  Report Type: 
  Country: None (occurrence: None)
  Receive Date: 20061205
  Receipt Date: 20061120
  Transmission Date: 20070319
  Serious: Yes (Other)
  Sender: FDA-Public Use
  Company Number: 2006143819

PATIENT
  Age: 61 Year
  Sex: Male
  Weight: 108.8633 kg

DRUGS (1)
  1. SUTENT [Suspect]
     Indication: RENAL CELL CARCINOMA STAGE UNSPECIFIED
     Dosage: 37.5 MG (37.5 MG, 1 IN 1 D)
     Dates: start: 20050527

REACTIONS (2)
  - ADRENAL INSUFFICIENCY [None]
  - INCORRECT DRUG ADMINISTRATION DURATION [None]
